FAERS Safety Report 7072191-8 (Version None)
Quarter: 2010Q4

REPORT INFORMATION
  Report Type: 
  Country: None (occurrence: None)
  Receive Date: 20101029
  Receipt Date: 20100303
  Transmission Date: 20110411
  Serious: No
  Sender: FDA-Public Use
  Company Number: A0835408A

PATIENT
  Sex: Female

DRUGS (2)
  1. ADVAIR DISKUS 100/50 [Suspect]
     Indication: PRODUCT USED FOR UNKNOWN INDICATION
     Dosage: 1PUFF TWICE PER DAY
     Route: 055
     Dates: start: 20090301, end: 20091212
  2. PROVENTIL-HFA [Concomitant]

REACTIONS (5)
  - ANXIETY [None]
  - DISORIENTATION [None]
  - PRODUCT QUALITY ISSUE [None]
  - SOMNOLENCE [None]
  - TREMOR [None]
